FAERS Safety Report 10434285 (Version 1)
Quarter: 2014Q3

REPORT INFORMATION
  Report Type: Spontaneous
  Country: CH (occurrence: CH)
  Receive Date: 20140905
  Receipt Date: 20140905
  Transmission Date: 20150326
  Serious: Yes (Hospitalization)
  Sender: FDA-Public Use
  Company Number: CH-009507513-1408CHE016933

PATIENT
  Age: 72 Year
  Sex: Male

DRUGS (10)
  1. STALEVO [Suspect]
     Active Substance: CARBIDOPA\ENTACAPONE\LEVODOPA
     Dosage: E- STALEVO 100 MG, QID
     Route: 048
  2. URISPAS [Concomitant]
     Active Substance: FLAVOXATE HYDROCHLORIDE
     Dosage: UNK
     Route: 048
  3. CLOPIN [Suspect]
     Active Substance: CLOPIDOGREL BISULFATE
     Dosage: 25 MG, QD
     Route: 048
     Dates: start: 20140319
  4. SINEMET CR [Suspect]
     Active Substance: CARBIDOPA\LEVODOPA
     Dosage: 50/200 MG ONCE DAILY IN THE EVENING
     Route: 048
  5. DANCOR [Concomitant]
     Active Substance: NICORANDIL
     Dosage: LONG TERM
     Route: 048
  6. BUPRENORPHINE HCL [Concomitant]
     Active Substance: BUPRENORPHINE HYDROCHLORIDE
     Dosage: MATRIX PATCH
     Route: 062
  7. OMEPRAZOLE. [Concomitant]
     Active Substance: OMEPRAZOLE
     Dosage: LONG TERM 20 MG PER DAY, QD
     Route: 048
  8. SYMMETREL [Suspect]
     Active Substance: AMANTADINE HYDROCHLORIDE
     Dosage: 100 MG IN THE MORNING, BID
     Route: 048
     Dates: end: 20140319
  9. SORTIS [Concomitant]
     Active Substance: ATORVASTATIN
     Dosage: LONG TERM
     Route: 048
  10. SIFROL [Suspect]
     Active Substance: PRAMIPEXOLE
     Dosage: 1.5 MG ONCE DAILY, QD
     Route: 048
     Dates: end: 20140319

REACTIONS (4)
  - Delirium [Not Recovered/Not Resolved]
  - Agitation [Not Recovered/Not Resolved]
  - Electrocardiogram QT prolonged [Recovering/Resolving]
  - Hallucination [Not Recovered/Not Resolved]

NARRATIVE: CASE EVENT DATE: 20140319
